FAERS Safety Report 7864451-5 (Version None)
Quarter: 2011Q4

REPORT INFORMATION
  Report Type: 
  Country: None (occurrence: None)
  Receive Date: 20111028
  Receipt Date: 20111025
  Transmission Date: 20120403
  Serious: Yes (Death)
  Sender: FDA-Public Use
  Company Number: PHHY2011AR94051

PATIENT
  Sex: Female

DRUGS (1)
  1. EXELON [Suspect]
     Indication: AMNESIA
     Dosage: 4.6 MG, QD
     Dates: start: 20100801

REACTIONS (1)
  - ARRHYTHMIA [None]
